FAERS Safety Report 7382292-2 (Version None)
Quarter: 2011Q1

REPORT INFORMATION
  Report Type: 
  Country: None (occurrence: None)
  Receive Date: 20110329
  Receipt Date: 20110211
  Transmission Date: 20110831
  Serious: Yes (Hospitalization, Other)
  Sender: FDA-Public Use
  Company Number: US-BAYER-201042080NA

PATIENT
  Sex: Female
  Weight: 87.982 kg

DRUGS (7)
  1. YAZ [Suspect]
     Indication: CONTRACEPTION
  2. YAZ [Suspect]
     Indication: MENOPAUSAL SYMPTOMS
  3. YAZ [Suspect]
     Indication: DYSTHYMIC DISORDER
  4. XANAX [Concomitant]
     Indication: ANXIETY
     Dosage: UNK
     Dates: start: 20081205
  5. YAZ [Suspect]
     Indication: PREMENSTRUAL SYNDROME
     Route: 048
     Dates: start: 20070913, end: 20081129
  6. YAZ [Suspect]
     Indication: ACNE
  7. YAZ [Suspect]
     Indication: HYPERTRICHOSIS

REACTIONS (2)
  - PULMONARY EMBOLISM [None]
  - PULMONARY INFARCTION [None]
